FAERS Safety Report 5307551-6 (Version None)
Quarter: 2007Q2

REPORT INFORMATION
  Report Type: 
  Country: None (occurrence: None)
  Receive Date: 20070425
  Receipt Date: 20070416
  Transmission Date: 20071010
  Serious: No
  Sender: FDA-Public Use
  Company Number: DE-ELI_LILLY_AND_COMPANY-DE200704004048

PATIENT
  Age: 14 Year
  Sex: Male

DRUGS (3)
  1. STRATTERA [Suspect]
     Indication: ATTENTION DEFICIT/HYPERACTIVITY DISORDER
     Dosage: 60 MG, DAILY (1/D)
     Route: 048
     Dates: start: 20061229
  2. STRATTERA [Suspect]
     Dosage: 58 MG, DAILY (1/D)
     Route: 048
  3. RISPERDAL [Concomitant]
     Dosage: 1 MG, DAILY (1/D)
     Dates: start: 20061229

REACTIONS (1)
  - ELECTROCARDIOGRAM QT PROLONGED [None]
